FAERS Safety Report 23601455 (Version 1)
Quarter: 2024Q1

REPORT INFORMATION
  Report Type: Spontaneous
  Country: US (occurrence: US)
  Receive Date: 20240306
  Receipt Date: 20240306
  Transmission Date: 20240410
  Serious: No
  Sender: FDA-Public Use
  Company Number: US-INSUD PHARMA-2402US01711

PATIENT

DRUGS (1)
  1. PROGESTERONE [Suspect]
     Active Substance: PROGESTERONE
     Indication: Product used for unknown indication
     Dosage: UNK
     Route: 048

REACTIONS (4)
  - Abdominal discomfort [Unknown]
  - Product dose omission issue [Unknown]
  - Poor quality product administered [Unknown]
  - Product odour abnormal [Unknown]
